FAERS Safety Report 8611250-2 (Version None)
Quarter: 2012Q3

REPORT INFORMATION
  Report Type: 
  Country: None (occurrence: None)
  Receive Date: 20120822
  Receipt Date: 20120814
  Transmission Date: 20120928
  Serious: Yes (Other)
  Sender: FDA-Public Use
  Company Number: US-ROXANE LABORATORIES, INC.-2012-RO-01706RO

PATIENT
  Age: 71 Year
  Sex: Male

DRUGS (3)
  1. DONEPEZIL HCL [Suspect]
     Dosage: 5 MG
  2. QUETIAPINE FUMARATE [Suspect]
     Indication: SCHIZOPHRENIA, PARANOID TYPE
     Dosage: 400 MG
  3. DONEPEZIL HCL [Suspect]
     Dosage: 10 MG

REACTIONS (1)
  - MANIA [None]
